FAERS Safety Report 9797070 (Version 1)
Quarter: 2014Q1

REPORT INFORMATION
  Report Type: Spontaneous
  Country: TR (occurrence: TR)
  Receive Date: 20140105
  Receipt Date: 20140105
  Transmission Date: 20141002
  Serious: Yes (Other)
  Sender: FDA-Public Use
  Company Number: TR-MYLANLABS-2013S1029063

PATIENT
  Sex: Male

DRUGS (4)
  1. NETILMICIN [Suspect]
     Indication: EVIDENCE BASED TREATMENT
     Dosage: 5 MG/KG/DAY
     Route: 042
  2. VANCOMYCIN [Suspect]
     Dosage: ONCE EVERY 18 HOURS
     Route: 065
  3. AMPICILLIN [Concomitant]
     Indication: EVIDENCE BASED TREATMENT
     Dosage: 25 MG/KG/DOSE X2
     Route: 042
  4. MEROPENEM [Concomitant]
     Route: 065

REACTIONS (1)
  - Pseudo-Bartter syndrome [Recovered/Resolved]
